FAERS Safety Report 20767624 (Version 2)
Quarter: 2022Q4

REPORT INFORMATION
  Report Type: Spontaneous
  Country: RU (occurrence: RU)
  Receive Date: 20220429
  Receipt Date: 20221228
  Transmission Date: 20230113
  Serious: Yes (Other)
  Sender: FDA-Public Use
  Company Number: RU-SA-2022SA138134

PATIENT
  Age: 53 Year
  Sex: Female
  Weight: 105 kg

DRUGS (4)
  1. LANTUS [Suspect]
     Active Substance: INSULIN GLARGINE
     Dosage: 10 IU/ML
  2. LANTUS [Suspect]
     Active Substance: INSULIN GLARGINE
     Dosage: 50 IU/ML
  3. NOVORAPID [Concomitant]
     Active Substance: INSULIN ASPART
     Dosage: 1 XE: 4 IU FOR BREAKFAST, FOR LUNCH 1 XE: 3 IU, FOR DINNER 1XE:2IU
  4. TOUJEO [Concomitant]
     Active Substance: INSULIN GLARGINE
     Dosage: 56 IU

REACTIONS (3)
  - Pyoderma [Unknown]
  - Condition aggravated [Unknown]
  - Wrong technique in product usage process [Unknown]
